FAERS Safety Report 13085704 (Version 2)
Quarter: 2017Q1

REPORT INFORMATION
  Report Type: Report from Study
  Country: TW (occurrence: TW)
  Receive Date: 20170104
  Receipt Date: 20170113
  Transmission Date: 20170428
  Serious: Yes (Hospitalization, Other)
  Sender: FDA-Public Use
  Company Number: PHHY2016TW172853

PATIENT
  Age: 56 Year
  Sex: Female
  Weight: 51 kg

DRUGS (6)
  1. EXJADE [Suspect]
     Active Substance: DEFERASIROX
     Indication: MYELODYSPLASTIC SYNDROME
     Dosage: 1000 MG, UNK
     Route: 048
     Dates: start: 20161021
  2. VIDAZA [Concomitant]
     Active Substance: AZACITIDINE
     Dosage: 120 MG, UNK
     Dates: start: 20161119, end: 20161124
  3. G-CSF [Concomitant]
     Active Substance: GRANULOCYTE COLONY-STIMULATING FACTOR NOS
     Indication: PRODUCT USED FOR UNKNOWN INDICATION
     Route: 065
  4. VIDAZA [Concomitant]
     Active Substance: AZACITIDINE
     Indication: MYELODYSPLASTIC SYNDROME
     Dosage: 100 MG, UNK
     Route: 065
     Dates: start: 20161118
  5. EXACIN [Concomitant]
     Active Substance: ISEPAMICIN
     Indication: PRODUCT USED FOR UNKNOWN INDICATION
     Route: 065
  6. TAZOCIN [Concomitant]
     Active Substance: PIPERACILLIN SODIUM\TAZOBACTAM SODIUM
     Indication: PRODUCT USED FOR UNKNOWN INDICATION
     Route: 065

REACTIONS (8)
  - Pyrexia [Recovering/Resolving]
  - Chills [Not Recovered/Not Resolved]
  - Candida infection [Recovered/Resolved]
  - Infection [Unknown]
  - Malaise [Not Recovered/Not Resolved]
  - Diarrhoea [Recovered/Resolved]
  - Febrile neutropenia [Not Recovered/Not Resolved]
  - Pancytopenia [Unknown]

NARRATIVE: CASE EVENT DATE: 20161208
